FAERS Safety Report 23213875 (Version 2)
Quarter: 2023Q4

REPORT INFORMATION
  Report Type: Other
  Country: JP (occurrence: JP)
  Receive Date: 20231121
  Receipt Date: 20231121
  Transmission Date: 20240110
  Serious: No
  Sender: FDA-Public Use
  Company Number: JP-WW-2023-06153-LUN

PATIENT
  Age: 84 Year
  Sex: Male

DRUGS (9)
  1. LUNESTA [Suspect]
     Active Substance: ESZOPICLONE
     Route: 048
  2. DAYVIGO [Suspect]
     Active Substance: LEMBOREXANT
     Indication: Insomnia
     Route: 048
     Dates: start: 20230508, end: 20230510
  3. BETAHISTINE MESILATE [Suspect]
     Active Substance: BETAHISTINE MESILATE
     Dosage: DOSE UNKNOWN
     Route: 048
     Dates: start: 201407
  4. AMLODIPINE [Concomitant]
     Active Substance: AMLODIPINE BESYLATE
     Dosage: DOSE UNKNOWN
     Route: 048
     Dates: start: 201804
  5. ALLOPURINOL [Concomitant]
     Active Substance: ALLOPURINOL
     Dosage: DOSE UNKNOWN
     Route: 048
     Dates: start: 201007
  6. ASPIRIN [Concomitant]
     Active Substance: ASPIRIN
     Dosage: DOSE UNKNOWN
     Route: 048
     Dates: start: 201806
  7. CANDESARTAN [Concomitant]
     Active Substance: CANDESARTAN
     Dosage: DOSE UNKNOWN
     Route: 048
     Dates: start: 202201
  8. VIBEGRON [Concomitant]
     Active Substance: VIBEGRON
     Dosage: DOSE UNKNOWN
     Route: 048
     Dates: start: 202301
  9. SILODOSIN [Concomitant]
     Active Substance: SILODOSIN
     Dosage: DOSE UNKNOWN
     Route: 048
     Dates: start: 202301

REACTIONS (2)
  - Tremor [Recovered/Resolved]
  - Dizziness [Recovering/Resolving]

NARRATIVE: CASE EVENT DATE: 20230508
